FAERS Safety Report 8069633-8 (Version None)
Quarter: 2012Q1

REPORT INFORMATION
  Report Type: 
  Country: None (occurrence: None)
  Receive Date: 20120125
  Receipt Date: 20120118
  Transmission Date: 20120608
  Serious: Yes (Other)
  Sender: FDA-Public Use
  Company Number: US-SANOFI-AVENTIS-2012SA004337

PATIENT
  Sex: Female

DRUGS (5)
  1. ALLEGRA [Suspect]
  2. CALCIUM WITH VITAMIN D [Suspect]
  3. VITAMIN B COMPLEX CAP [Suspect]
  4. GNC MAXIMUM GREENS [Suspect]
  5. ASCORBIC ACID [Suspect]

REACTIONS (1)
  - HYPOGLYCAEMIA [None]
